FAERS Safety Report 7991741-8 (Version None)
Quarter: 2011Q4

REPORT INFORMATION
  Report Type: 
  Country: None (occurrence: None)
  Receive Date: 20111219
  Receipt Date: 20111207
  Transmission Date: 20120403
  Serious: Yes (Hospitalization, Other)
  Sender: FDA-Public Use
  Company Number: PHNR2005AU01586

PATIENT
  Sex: Female

DRUGS (7)
  1. ERGOCALCIFEROL [Concomitant]
  2. CLOZARIL [Suspect]
     Indication: SCHIZOPHRENIA
     Dosage: 200 MG, DAILY
     Dates: start: 20051010, end: 20051028
  3. CALCIUM CARBONATE [Concomitant]
  4. METFORMIN HCL [Concomitant]
     Dosage: 500 MG, BID
  5. CLOZARIL [Suspect]
     Dosage: 200 MG, DAILY
     Dates: start: 20051029, end: 20051031
  6. ATORVASTATIN [Concomitant]
  7. PERINDOPRIL [Concomitant]
     Dosage: 4 UKN, DAILY

REACTIONS (27)
  - ECHOCARDIOGRAM ABNORMAL [None]
  - DIZZINESS [None]
  - INFECTION [None]
  - HYPERHIDROSIS [None]
  - C-REACTIVE PROTEIN INCREASED [None]
  - NEUTROPHIL COUNT INCREASED [None]
  - BLOOD BICARBONATE DECREASED [None]
  - VENTRICULAR HYPOKINESIA [None]
  - TROPONIN I INCREASED [None]
  - RED BLOOD CELL SEDIMENTATION RATE ABNORMAL [None]
  - HAEMATOCRIT DECREASED [None]
  - PYREXIA [None]
  - SINUS TACHYCARDIA [None]
  - TACHYCARDIA [None]
  - OEDEMA PERIPHERAL [None]
  - WHITE BLOOD CELL COUNT INCREASED [None]
  - EOSINOPHIL COUNT INCREASED [None]
  - MYOCARDITIS [None]
  - DYSPNOEA [None]
  - HEART RATE INCREASED [None]
  - LYMPHOCYTE MORPHOLOGY ABNORMAL [None]
  - PALPITATIONS [None]
  - CELL MARKER INCREASED [None]
  - BAND NEUTROPHIL COUNT INCREASED [None]
  - MYELOCYTE COUNT INCREASED [None]
  - LEFT VENTRICULAR DYSFUNCTION [None]
  - ELECTROCARDIOGRAM ABNORMAL [None]
